FAERS Safety Report 4288797-5 (Version None)
Quarter: 2004Q1

REPORT INFORMATION
  Report Type: 
  Country: None (occurrence: None)
  Receive Date: 20040205
  Receipt Date: 20040123
  Transmission Date: 20041129
  Serious: Yes (Hospitalization)
  Sender: FDA-Public Use
  Company Number: 04H-056-0248809-00

PATIENT
  Age: 59 Year
  Sex: Male
  Weight: 50 kg

DRUGS (4)
  1. PENTOTHAL [Suspect]
     Indication: EPILEPSY
     Dosage: INTRAVENOUS
     Route: 042
     Dates: start: 20030825, end: 20030901
  2. BACTRIM [Suspect]
     Dates: end: 20030905
  3. VALPROIC ACID [Suspect]
     Indication: EPILEPSY
     Dosage: INTRAVENOUS
     Route: 042
     Dates: start: 20030901, end: 20030905
  4. CARVEDILOL [Suspect]
     Dates: end: 20030905

REACTIONS (1)
  - THROMBOCYTOPENIA [None]
